FAERS Safety Report 22184265 (Version 1)
Quarter: 2023Q2

REPORT INFORMATION
  Report Type: Spontaneous
  Country: US (occurrence: US)
  Receive Date: 20230407
  Receipt Date: 20230407
  Transmission Date: 20230721
  Serious: No
  Sender: FDA-Public Use
  Company Number: US-BEIGENE USA INC-BGN-2023-002741

PATIENT

DRUGS (2)
  1. BRUKINSA [Suspect]
     Active Substance: ZANUBRUTINIB
     Indication: Chronic lymphocytic leukaemia
     Dosage: 160 MILLIGRAM, BID
     Route: 048
  2. BRUKINSA [Suspect]
     Active Substance: ZANUBRUTINIB
     Dosage: UNK

REACTIONS (3)
  - Subcutaneous haematoma [Recovered/Resolved]
  - Prescribed underdose [Unknown]
  - Off label use [Unknown]

NARRATIVE: CASE EVENT DATE: 20220401
